FAERS Safety Report 9744375 (Version 2)
Quarter: 2013Q4

REPORT INFORMATION
  Report Type: Report from Study
  Country: AU (occurrence: AU)
  Receive Date: 20131210
  Receipt Date: 20131210
  Transmission Date: 20140711
  Serious: Yes (Hospitalization)
  Sender: FDA-Public Use
  Company Number: AU-ABBVIE-09P-008-0587059-00

PATIENT
  Age: 52 Year
  Sex: Female

DRUGS (5)
  1. HUMIRA [Suspect]
     Indication: CROHN^S DISEASE
     Route: 058
     Dates: start: 20090415
  2. METHOTREXATE [Concomitant]
     Indication: CROHN^S DISEASE
     Dates: start: 20080721, end: 200909
  3. PREDNISOLONE [Concomitant]
     Indication: CROHN^S DISEASE
     Dates: start: 20090408, end: 20090422
  4. FOLIC ACID [Concomitant]
     Indication: VITAMIN SUPPLEMENTATION
     Dates: start: 20080721, end: 200909
  5. TRAMADOL [Concomitant]
     Indication: ABDOMINAL PAIN
     Dates: start: 200812

REACTIONS (1)
  - Crohn^s disease [Recovered/Resolved]
